FAERS Safety Report 7481554-8 (Version None)
Quarter: 2011Q2

REPORT INFORMATION
  Report Type: 
  Country: None (occurrence: None)
  Receive Date: 20110516
  Receipt Date: 20110509
  Transmission Date: 20111010
  Serious: Yes (Death, Other)
  Sender: FDA-Public Use
  Company Number: JP-JNJFOC-20090908170

PATIENT
  Sex: Female
  Weight: 55 kg

DRUGS (14)
  1. PYRIDOXAL PHOSPHATE [Concomitant]
     Indication: PROPHYLAXIS
     Route: 048
     Dates: start: 20090515
  2. MAGNESIUM OXIDE [Concomitant]
     Route: 048
     Dates: start: 20080401
  3. DOXORUBICIN HCL [Suspect]
     Route: 042
     Dates: start: 20090612, end: 20090612
  4. ATORVASTATIN CALCIUM [Concomitant]
     Route: 048
     Dates: start: 20080401
  5. LOXOPROFEN SODIUM [Concomitant]
     Route: 048
     Dates: start: 20090123
  6. DOXORUBICIN HCL [Suspect]
     Route: 042
     Dates: start: 20090807, end: 20090807
  7. ATENOLOL [Concomitant]
     Route: 048
     Dates: start: 20080401
  8. DOXORUBICIN HCL [Suspect]
     Route: 042
     Dates: start: 20090710, end: 20090710
  9. CANDESARTAN CILEXETIL [Concomitant]
     Route: 048
     Dates: start: 20080401
  10. LANSOPRAZOLE [Concomitant]
     Indication: PROPHYLAXIS
     Route: 048
     Dates: start: 20080401
  11. CELECOXIB [Concomitant]
     Indication: PROPHYLAXIS
     Route: 048
     Dates: start: 20090123
  12. FUROSEMIDE [Concomitant]
     Indication: PROPHYLAXIS
     Route: 048
     Dates: start: 20090612
  13. DOXORUBICIN HCL [Suspect]
     Indication: OVARIAN CANCER RECURRENT
     Route: 042
     Dates: start: 20090515, end: 20090515
  14. CONCENTRATED RED CELLS [Concomitant]
     Route: 042

REACTIONS (2)
  - OVARIAN CANCER [None]
  - ERYTHROPENIA [None]
